FAERS Safety Report 10265516 (Version 1)
Quarter: 2014Q2

REPORT INFORMATION
  Report Type: Spontaneous
  Country: US (occurrence: None)
  Receive Date: 20140625
  Receipt Date: 20140625
  Transmission Date: 20141212
  Serious: Yes (Hospitalization)
  Sender: FDA-Public Use
  Company Number: None

PATIENT
  Age: 25 Year
  Sex: Female
  Weight: 122.47 kg

DRUGS (1)
  1. BICILLIN LA [Suspect]
     Indication: ANTIBIOTIC THERAPY
     Dosage: 1.2 MU, ONCE, INTRAMUSCULAR
     Route: 030
     Dates: start: 20140401, end: 20140529

REACTIONS (4)
  - Injection site pain [None]
  - Injection site abscess [None]
  - Medication residue present [None]
  - Product quality issue [None]
